FAERS Safety Report 5799642-0 (Version None)
Quarter: 2008Q3

REPORT INFORMATION
  Report Type: 
  Country: None (occurrence: None)
  Receive Date: 20080702
  Receipt Date: 20080702
  Transmission Date: 20090109
  Serious: Yes (Other)
  Sender: FDA-Public Use
  Company Number: None

PATIENT
  Age: 85 Year
  Sex: Female
  Weight: 50.8029 kg

DRUGS (3)
  1. DIGITEK 0.125MG MYLAN/BERTEK [Suspect]
     Dosage: TAKE 1 TABLET DAILY ORALLY
     Route: 048
     Dates: start: 20080420
  2. CHLORTHALIDONE [Concomitant]
  3. WARFARIN SODIUM [Concomitant]

REACTIONS (3)
  - DIZZINESS [None]
  - PHARMACEUTICAL PRODUCT COMPLAINT [None]
  - SOMNOLENCE [None]
